FAERS Safety Report 7972967-6 (Version None)
Quarter: 2011Q4

REPORT INFORMATION
  Report Type: 
  Country: None (occurrence: None)
  Receive Date: 20111213
  Receipt Date: 20111209
  Transmission Date: 20120403
  Serious: Yes (Other)
  Sender: FDA-Public Use
  Company Number: US-PFIZER INC-2011301238

PATIENT
  Sex: Male
  Weight: 177 kg

DRUGS (3)
  1. IBUPROFEN (ADVIL) [Suspect]
     Indication: PAIN
     Dosage: TWO TABLETS AS NEEDED
     Route: 048
     Dates: start: 20080101
  2. PREDNISONE TAB [Suspect]
     Indication: NON-HODGKIN'S LYMPHOMA
     Dosage: UNK
     Route: 065
  3. SYNTHROID [Concomitant]
     Indication: THYROID DISORDER
     Dosage: 0.25 UG, DAILY
     Route: 048
     Dates: start: 20110101

REACTIONS (5)
  - ABDOMINAL DISTENSION [None]
  - TYPE 2 DIABETES MELLITUS [None]
  - WEIGHT INCREASED [None]
  - ABDOMINAL DISCOMFORT [None]
  - ABDOMINAL PAIN UPPER [None]
